FAERS Safety Report 5367588-8 (Version None)
Quarter: 2007Q2

REPORT INFORMATION
  Report Type: 
  Country: None (occurrence: None)
  Receive Date: 20070620
  Receipt Date: 20070620
  Transmission Date: 20071010
  Serious: Yes (Other)
  Sender: FDA-Public Use
  Company Number: None

PATIENT
  Sex: Female

DRUGS (2)
  1. CLARITIN [Suspect]
     Indication: ECZEMA
     Dosage: STANDARD DOSE 1 Q DAY ORAL SEVERAL YEARS
     Route: 048
  2. CLARITIN [Suspect]
     Indication: PRURITUS
     Dosage: STANDARD DOSE 1 Q DAY ORAL SEVERAL YEARS
     Route: 048

REACTIONS (2)
  - DRUG ERUPTION [None]
  - PHOTOSENSITIVITY REACTION [None]
